FAERS Safety Report 23747892 (Version 1)
Quarter: 2024Q2

REPORT INFORMATION
  Report Type: Spontaneous
  Country: CN (occurrence: CN)
  Receive Date: 20240416
  Receipt Date: 20240416
  Transmission Date: 20240716
  Serious: Yes (Hospitalization, Other)
  Sender: FDA-Public Use
  Company Number: CN-PFIZER INC-PV202400048749

PATIENT
  Age: 58 Year
  Sex: Male
  Weight: 62.5 kg

DRUGS (4)
  1. EPIRUBICIN HYDROCHLORIDE [Suspect]
     Active Substance: EPIRUBICIN HYDROCHLORIDE
     Indication: Hepatocellular carcinoma
     Dosage: 60 MG, 1X/DAY
     Dates: start: 20240321, end: 20240321
  2. OXALIPLATIN [Suspect]
     Active Substance: OXALIPLATIN
     Indication: Hepatocellular carcinoma
     Dosage: 50 MG, 1X/DAY
     Dates: start: 20240321, end: 20240321
  3. IODINE [Concomitant]
     Active Substance: IODINE
     Indication: Hepatocellular carcinoma
     Dosage: 10 ML, 1X/DAY
     Dates: start: 20240321, end: 20240321
  4. DEXTROSE [Concomitant]
     Active Substance: DEXTROSE\DEXTROSE MONOHYDRATE
     Indication: Vehicle solution use
     Dosage: IN TOTAL OF 50ML, 1X/DAY
     Dates: start: 20240321, end: 20240321

REACTIONS (6)
  - Hepatic function abnormal [Recovering/Resolving]
  - Alanine aminotransferase increased [Recovering/Resolving]
  - Aspartate aminotransferase increased [Recovering/Resolving]
  - Off label use [Unknown]
  - Off label use [Unknown]
  - Product preparation issue [Unknown]

NARRATIVE: CASE EVENT DATE: 20240321
